FAERS Safety Report 7455280-5 (Version None)
Quarter: 2011Q2

REPORT INFORMATION
  Report Type: 
  Country: None (occurrence: None)
  Receive Date: 20110503
  Receipt Date: 20110420
  Transmission Date: 20111010
  Serious: Yes (Hospitalization)
  Sender: FDA-Public Use
  Company Number: US-AMGEN-US193688

PATIENT
  Age: 47 Year
  Sex: Male
  Weight: 78 kg

DRUGS (5)
  1. ENBREL [Suspect]
     Dates: start: 20041105, end: 20060101
  2. METHOTREXATE [Concomitant]
     Dosage: UNK UNK, UNK
     Dates: start: 19960101, end: 20060328
  3. FLUCONAZOLE [Concomitant]
     Dosage: UNK UNK, UNK
     Dates: start: 19960101
  4. ENBREL [Suspect]
     Indication: PSORIATIC ARTHROPATHY
     Dosage: 25 MG, 2 TIMES/WK
     Route: 058
     Dates: start: 20041123, end: 20060328
  5. ACITRETIN [Concomitant]
     Dosage: UNK UNK, UNK
     Dates: start: 20010101

REACTIONS (5)
  - HISTOPLASMOSIS DISSEMINATED [None]
  - PYREXIA [None]
  - PSORIATIC ARTHROPATHY [None]
  - CHILLS [None]
  - LIVER FUNCTION TEST ABNORMAL [None]
